FAERS Safety Report 19447371 (Version 1)
Quarter: 2021Q2

REPORT INFORMATION
  Report Type: Spontaneous
  Country: IN (occurrence: IN)
  Receive Date: 20210622
  Receipt Date: 20210622
  Transmission Date: 20210717
  Serious: Yes (Death, Other)
  Sender: FDA-Public Use
  Company Number: IN-TAKEDA-2021TUS036789

PATIENT
  Age: 10 Year
  Sex: Female

DRUGS (11)
  1. LEVOFLOXACIN. [Concomitant]
     Active Substance: LEVOFLOXACIN
     Dosage: UNK
  2. VANCOMYCIN [Concomitant]
     Active Substance: VANCOMYCIN
     Dosage: 20 MILLIGRAM/KILOGRAM, Q8HR
  3. CLINDAMYCIN. [Concomitant]
     Active Substance: CLINDAMYCIN
     Dosage: 10 MILLIGRAM/KILOGRAM, Q8HR
  4. IMIPENEM [Concomitant]
     Active Substance: IMIPENEM
     Indication: ESCHERICHIA INFECTION
     Dosage: 25 MILLIGRAM/KILOGRAM, Q6HR
  5. HUMAN NORMAL IMMUNOGLOBULIN [Suspect]
     Active Substance: HUMAN IMMUNOGLOBULIN G
     Indication: STAPHYLOCOCCAL INFECTION
     Dosage: 2 GRAM PER KILOGRAM
     Route: 042
  6. AMIKACIN. [Concomitant]
     Active Substance: AMIKACIN
     Dosage: UNK
  7. IMIPENEM [Concomitant]
     Active Substance: IMIPENEM
     Indication: CANDIDA INFECTION
  8. HUMAN NORMAL IMMUNOGLOBULIN [Suspect]
     Active Substance: HUMAN IMMUNOGLOBULIN G
     Indication: HAEMOPHAGOCYTIC LYMPHOHISTIOCYTOSIS
  9. METHYLPREDNISOLONE. [Concomitant]
     Active Substance: METHYLPREDNISOLONE
     Indication: PLATELET COUNT DECREASED
     Dosage: 30 MILLIGRAM/KILOGRAM, QD
     Route: 042
  10. AMPHOTERICIN B. [Concomitant]
     Active Substance: AMPHOTERICIN B
     Indication: CANDIDA INFECTION
  11. AMPHOTERICIN B. [Concomitant]
     Active Substance: AMPHOTERICIN B
     Indication: ESCHERICHIA INFECTION
     Dosage: 5 MILLIGRAM/KILOGRAM, QD

REACTIONS (2)
  - Acute lung injury [Fatal]
  - Off label use [Unknown]
